FAERS Safety Report 6940072-3 (Version None)
Quarter: 2010Q3

REPORT INFORMATION
  Report Type: 
  Country: None (occurrence: None)
  Receive Date: 20100825
  Receipt Date: 20100817
  Transmission Date: 20110219
  Serious: Yes (Other)
  Sender: FDA-Public Use
  Company Number: US-RB-014323-10

PATIENT
  Age: 39 Year
  Sex: Female

DRUGS (4)
  1. SUBOXONE [Suspect]
     Indication: DRUG DEPENDENCE
     Route: 060
     Dates: start: 20100702
  2. SEROQUEL [Suspect]
     Indication: BIPOLAR DISORDER
     Route: 048
     Dates: start: 20100813, end: 20100814
  3. LITHIUM CARBONATE [Suspect]
     Indication: BIPOLAR DISORDER
     Dosage: ONCE
     Route: 048
     Dates: start: 20100813, end: 20100813
  4. PROZAC [Concomitant]
     Indication: DEPRESSION
     Dosage: 40 MG
     Route: 065

REACTIONS (2)
  - HALLUCINATION [None]
  - SOMNAMBULISM [None]
